FAERS Safety Report 6416207-8 (Version None)
Quarter: 2009Q4

REPORT INFORMATION
  Report Type: 
  Country: None (occurrence: None)
  Receive Date: 20091027
  Receipt Date: 20091016
  Transmission Date: 20100525
  Serious: Yes (Hospitalization, Other)
  Sender: FDA-Public Use
  Company Number: JP-PFIZER INC-2009238598

PATIENT
  Age: 70 Year

DRUGS (7)
  1. ZITHROMAC SR [Suspect]
     Indication: BRONCHITIS
     Dosage: 2 G, SINGLE
     Route: 048
     Dates: start: 20090611, end: 20090611
  2. LENDORMIN [Concomitant]
     Indication: INSOMNIA
     Dosage: UNK
     Route: 048
     Dates: end: 20090714
  3. SILECE [Concomitant]
     Indication: INSOMNIA
     Dosage: UNK
     Route: 048
     Dates: end: 20090714
  4. MEILAX [Concomitant]
     Indication: NEUROSIS
     Dosage: UNK
     Route: 048
     Dates: end: 20090714
  5. ALESION [Concomitant]
     Indication: RHINITIS
     Dosage: UNK
     Route: 048
     Dates: start: 20090611, end: 20090616
  6. PELEX [Concomitant]
     Indication: BRONCHITIS
     Dosage: 0.66 G, 3X/DAY
     Route: 048
     Dates: start: 20090611, end: 20090616
  7. CHLORPHENIRAMINE MALEATE [Concomitant]
     Indication: RHINITIS
     Dosage: UNK
     Route: 048
     Dates: start: 20090611, end: 20090616

REACTIONS (9)
  - ALANINE AMINOTRANSFERASE INCREASED [None]
  - ASPARTATE AMINOTRANSFERASE INCREASED [None]
  - BLOOD BILIRUBIN INCREASED [None]
  - DECREASED APPETITE [None]
  - GASTRIC ULCER HAEMORRHAGE [None]
  - JAUNDICE [None]
  - MALAISE [None]
  - MOUTH ULCERATION [None]
  - NAUSEA [None]
